FAERS Safety Report 9189224 (Version 2)
Quarter: 2013Q2

REPORT INFORMATION
  Report Type: Spontaneous
  Country: None (occurrence: None)
  Receive Date: 20130322
  Receipt Date: 20130508
  Transmission Date: 20140414
  Serious: Yes (Death)
  Sender: FDA-Public Use
  Company Number: 2013030074

PATIENT
  Sex: Male

DRUGS (3)
  1. LUPRAC [Suspect]
     Indication: PERIPHERAL ARTERIAL OCCLUSIVE DISEASE
     Route: 048
  2. ANPLAG [Concomitant]
     Route: 048
     Dates: start: 20100819, end: 20111227
  3. INSULIN (INSULIN) [Concomitant]

REACTIONS (3)
  - Cardiac failure [None]
  - Cardiomegaly [None]
  - Pleural effusion [None]
